FAERS Safety Report 21859259 (Version 1)
Quarter: 2023Q1

REPORT INFORMATION
  Report Type: Report from Study
  Country: US (occurrence: US)
  Receive Date: 20230113
  Receipt Date: 20230113
  Transmission Date: 20230418
  Serious: No
  Sender: FDA-Public Use
  Company Number: US-ABBVIE-4237087

PATIENT

DRUGS (2)
  1. RINVOQ [Suspect]
     Active Substance: UPADACITINIB
     Indication: Rheumatoid arthritis
     Route: 048
  2. RINVOQ [Suspect]
     Active Substance: UPADACITINIB
     Indication: Rheumatoid arthritis
     Route: 048
     Dates: start: 20210811

REACTIONS (5)
  - Musculoskeletal stiffness [Recovering/Resolving]
  - Nasopharyngitis [Recovering/Resolving]
  - Hepatic enzyme increased [Unknown]
  - Swelling [Recovering/Resolving]
  - Throat irritation [Unknown]

NARRATIVE: CASE EVENT DATE: 20220101
